FAERS Safety Report 10553502 (Version 1)
Quarter: 2014Q4

REPORT INFORMATION
  Report Type: Spontaneous
  Country: ES (occurrence: None)
  Receive Date: 20141028
  Receipt Date: 20141028
  Transmission Date: 20150529
  Serious: Yes (Hospitalization)
  Sender: FDA-Public Use
  Company Number: ES-DEXPHARM-20140652

PATIENT
  Age: 54 Year
  Sex: Male

DRUGS (3)
  1. OMEPRAZOLE. [Suspect]
     Active Substance: OMEPRAZOLE
     Indication: HELICOBACTER INFECTION
     Dosage: SEP. DOSAGES/ INTERVAL: 1 DAYS
  2. CLARITHROMYCIN. [Suspect]
     Active Substance: CLARITHROMYCIN
     Indication: HELICOBACTER INFECTION
     Dosage: SEP. DOSAGES/ INTERVAL: 1 DAYS
  3. AMOXICILLIN. [Suspect]
     Active Substance: AMOXICILLIN
     Indication: HELICOBACTER INFECTION
     Dosage: SEP. DOSAGES/ INTERVAL: 1 DAYS

REACTIONS (8)
  - Mania [None]
  - Psychomotor hyperactivity [None]
  - Hyperthermia [None]
  - Insomnia [None]
  - Tachyphrenia [None]
  - Drug interaction [None]
  - Hallucinations, mixed [None]
  - Delusion [None]
